FAERS Safety Report 6215905-9 (Version None)
Quarter: 2009Q2

REPORT INFORMATION
  Report Type: 
  Country: None (occurrence: None)
  Receive Date: 20090605
  Receipt Date: 20090527
  Transmission Date: 20091009
  Serious: Yes (Hospitalization, Other)
  Sender: FDA-Public Use
  Company Number: AU-ASTRAZENECA-2009SE02052

PATIENT
  Age: 0 Day
  Sex: Male
  Weight: 4.6 kg

DRUGS (4)
  1. SEROQUEL [Suspect]
     Indication: PSYCHOTIC DISORDER
     Route: 064
     Dates: start: 20050101, end: 20080603
  2. CIPRAMIL [Concomitant]
     Indication: DEPRESSION
     Route: 064
     Dates: start: 20050101, end: 20080603
  3. FERROGRADUMET [Concomitant]
     Indication: BLOOD IRON DECREASED
     Dosage: 1 TABLET A DAY
     Route: 064
     Dates: start: 20070101, end: 20080101
  4. FOLATE [Concomitant]
     Indication: PROPHYLAXIS OF NEURAL TUBE DEFECT
     Route: 064

REACTIONS (1)
  - DRUG WITHDRAWAL SYNDROME NEONATAL [None]
